FAERS Safety Report 16908630 (Version 1)
Quarter: 2019Q4

REPORT INFORMATION
  Report Type: Spontaneous
  Country: FR (occurrence: FR)
  Receive Date: 20191011
  Receipt Date: 20191011
  Transmission Date: 20200122
  Serious: Yes (Other)
  Sender: FDA-Public Use
  Company Number: FR-PFIZER INC-2019436200

PATIENT
  Age: 6 Decade
  Sex: Male

DRUGS (16)
  1. MEDROL [Suspect]
     Active Substance: METHYLPREDNISOLONE
     Dosage: UNK
     Dates: start: 20030311
  2. SOLUPRED [PREDNISOLONE] [Suspect]
     Active Substance: PREDNISOLONE
     Dosage: UNK
     Dates: start: 20030204
  3. AUGMENTIN [Concomitant]
     Active Substance: AMOXICILLIN\CLAVULANATE POTASSIUM
     Dosage: UNK
     Dates: start: 20030225
  4. AUGMENTIN [Concomitant]
     Active Substance: AMOXICILLIN\CLAVULANATE POTASSIUM
     Dosage: UNK
     Dates: start: 20030311
  5. BECOTIDE [Suspect]
     Active Substance: BECLOMETHASONE DIPROPIONATE
     Indication: SINUSITIS
     Dosage: UNK
     Dates: start: 20020319
  6. AUGMENTIN [Concomitant]
     Active Substance: AMOXICILLIN\CLAVULANATE POTASSIUM
     Dosage: UNK
     Dates: start: 20030213
  7. RHINOCORT [Suspect]
     Active Substance: BUDESONIDE
     Indication: SINUSITIS
     Dosage: UNK
     Dates: start: 20031201
  8. RHINOCORT [Suspect]
     Active Substance: BUDESONIDE
     Dosage: UNK
     Dates: start: 20160223
  9. RHINOCORT [Suspect]
     Active Substance: BUDESONIDE
     Dosage: 2 SPRAYS PER DAY
     Dates: start: 20140225
  10. PYOSTACINE [Concomitant]
     Active Substance: PRISTINAMYCIN
     Dosage: UNK
     Dates: start: 20030204
  11. BECOTIDE [Suspect]
     Active Substance: BECLOMETHASONE DIPROPIONATE
     Dosage: UNK
     Dates: start: 20030225
  12. PYOSTACINE [Concomitant]
     Active Substance: PRISTINAMYCIN
     Indication: SINUSITIS
     Dosage: UNK
     Dates: start: 20030114
  13. MEDROL [Suspect]
     Active Substance: METHYLPREDNISOLONE
     Indication: SINUSITIS
     Dosage: UNK
     Dates: start: 20030204
  14. SOLUPRED [PREDNISOLONE] [Suspect]
     Active Substance: PREDNISOLONE
     Indication: SINUSITIS
     Dosage: UNK
     Dates: start: 20020624
  15. RHINOCORT [Suspect]
     Active Substance: BUDESONIDE
     Dosage: UNK
     Dates: start: 20061204
  16. AUGMENTIN [Concomitant]
     Active Substance: AMOXICILLIN\CLAVULANATE POTASSIUM
     Indication: SINUSITIS
     Dosage: UNK
     Dates: start: 20020624

REACTIONS (4)
  - Osteonecrosis [Unknown]
  - Intentional product misuse [Unknown]
  - Aortic valve incompetence [Unknown]
  - Off label use [Unknown]

NARRATIVE: CASE EVENT DATE: 2016
